FAERS Safety Report 4832208-5 (Version None)
Quarter: 2005Q4

REPORT INFORMATION
  Report Type: 
  Country: None (occurrence: None)
  Receive Date: 20051118
  Receipt Date: 20051109
  Transmission Date: 20060501
  Serious: Yes (Hospitalization)
  Sender: FDA-Public Use
  Company Number: US-MERCK-0511USA02857

PATIENT
  Sex: Male

DRUGS (1)
  1. TIAMATE [Suspect]
     Route: 048

REACTIONS (2)
  - PURPURA [None]
  - SKIN ULCER [None]
